FAERS Safety Report 6910262-4 (Version None)
Quarter: 2010Q3

REPORT INFORMATION
  Report Type: 
  Country: None (occurrence: None)
  Receive Date: 20100806
  Receipt Date: 20100723
  Transmission Date: 20110219
  Serious: Yes (Hospitalization, Other)
  Sender: FDA-Public Use
  Company Number: DE-ELI_LILLY_AND_COMPANY-DE201007005905

PATIENT
  Sex: Male

DRUGS (4)
  1. EFFIENT [Suspect]
     Dosage: UNK, UNKNOWN
     Route: 048
  2. ASPIRIN [Concomitant]
  3. IBUPROFEN [Concomitant]
     Indication: PAIN
  4. PARACETAMOL [Concomitant]
     Indication: ANALGESIC THERAPY

REACTIONS (2)
  - GASTROINTESTINAL HAEMORRHAGE [None]
  - THROMBOSIS [None]
